FAERS Safety Report 11683586 (Version 1)
Quarter: 2015Q4

REPORT INFORMATION
  Report Type: Spontaneous
  Country: US (occurrence: US)
  Receive Date: 20151029
  Receipt Date: 20151029
  Transmission Date: 20160304
  Serious: Yes (Death, Hospitalization)
  Sender: FDA-Public Use
  Company Number: US-TEVA-603964USA

PATIENT
  Sex: Female

DRUGS (3)
  1. GRANIX [Suspect]
     Active Substance: TBO-FILGRASTIM
     Indication: PRODUCT USED FOR UNKNOWN INDICATION
     Route: 065
     Dates: start: 201502
  2. ALOXI [Concomitant]
     Active Substance: PALONOSETRON HYDROCHLORIDE
     Indication: PRODUCT USED FOR UNKNOWN INDICATION
     Route: 065
     Dates: start: 201502
  3. HALAVEN [Concomitant]
     Active Substance: ERIBULIN MESYLATE

REACTIONS (2)
  - Death [Fatal]
  - Hospitalisation [Unknown]
